FAERS Safety Report 24708056 (Version 2)
Quarter: 2024Q4

REPORT INFORMATION
  Report Type: Spontaneous
  Country: US (occurrence: US)
  Receive Date: 20241206
  Receipt Date: 20241221
  Transmission Date: 20250114
  Serious: Yes (Hospitalization, Other)
  Sender: IOVANCE BIOTHERAPEUTICS
  Company Number: US-IOVANCE BIOTHERAPEUTICS, INC-2024IOV000117

PATIENT

DRUGS (6)
  1. AMTAGVI [Suspect]
     Active Substance: LIFILEUCEL
     Indication: Metastatic malignant melanoma
     Dosage: 1 BAG ONCE
     Route: 042
     Dates: start: 20241109, end: 20241109
  2. AMTAGVI [Suspect]
     Active Substance: LIFILEUCEL
     Dosage: 2 BAGS
     Route: 042
     Dates: start: 20241110, end: 20241110
  3. CYCLOPHOSPHAMIDE [Suspect]
     Active Substance: CYCLOPHOSPHAMIDE
     Indication: Lymphodepletion
     Route: 042
  4. FLUDARABINE [Suspect]
     Active Substance: FLUDARABINE PHOSPHATE
     Indication: Lymphodepletion
     Dosage: UNK
     Route: 042
  5. ALDESLEUKIN [Suspect]
     Active Substance: ALDESLEUKIN
     Indication: Interleukin therapy
     Dosage: UNK, SINGLE
     Route: 042
  6. ALDESLEUKIN [Suspect]
     Active Substance: ALDESLEUKIN
     Dosage: UNK, SINGLE
     Route: 042

REACTIONS (6)
  - Inflammation [Unknown]
  - Leukocytosis [Unknown]
  - Neutrophilia [Unknown]
  - Tachycardia [Unknown]
  - Hypotension [Unknown]
  - Hypoxia [Unknown]

NARRATIVE: CASE EVENT DATE: 20241109
